FAERS Safety Report 11132840 (Version 1)
Quarter: 2015Q2

REPORT INFORMATION
  Report Type: Spontaneous
  Country: US (occurrence: None)
  Receive Date: 20150521
  Receipt Date: 20150521
  Transmission Date: 20150821
  Serious: No
  Sender: FDA-Public Use
  Company Number: None

PATIENT
  Age: 67 Year
  Sex: Female

DRUGS (12)
  1. NIACIN ER [Suspect]
     Active Substance: NIACIN
     Indication: LOW DENSITY LIPOPROTEIN INCREASED
     Dosage: 1, AT BEDTIME, TAKEN BY MOUTH
     Route: 048
  2. OMEPRAZOLE/SODIUM BICARBONATE [Concomitant]
     Active Substance: OMEPRAZOLE\SODIUM BICARBONATE
  3. ULTRA 25 [Concomitant]
  4. COQ10 [Concomitant]
     Active Substance: UBIDECARENONE
  5. ZEGERID [Concomitant]
     Active Substance: OMEPRAZOLE\SODIUM BICARBONATE
  6. PRIOBIOTIC COMPLEX PLUS IMMUNE [Concomitant]
  7. OSTEO [Concomitant]
     Active Substance: CHONDROITIN SULFATE (BOVINE)\GLUCOSAMINE SULFATE
  8. CALCIUM WITH D [Concomitant]
     Active Substance: CALCIUM\VITAMIN D
  9. BI-FLEX [Concomitant]
  10. SIMVASTATIN. [Concomitant]
     Active Substance: SIMVASTATIN
  11. LOVAZA [Concomitant]
     Active Substance: OMEGA-3-ACID ETHYL ESTERS
  12. OMEGA 3 ACID [Concomitant]

REACTIONS (4)
  - Urticaria [None]
  - Product substitution issue [None]
  - Pruritus generalised [None]
  - Anxiety [None]

NARRATIVE: CASE EVENT DATE: 20150402
